FAERS Safety Report 5275322-5 (Version None)
Quarter: 2007Q1

REPORT INFORMATION
  Report Type: 
  Country: None (occurrence: None)
  Receive Date: 20070326
  Receipt Date: 20070319
  Transmission Date: 20070707
  Serious: No
  Sender: FDA-Public Use
  Company Number: DE-AVENTIS-200611969DE

PATIENT
  Age: 24 Year
  Sex: Female

DRUGS (2)
  1. ARAVA [Suspect]
     Route: 048
     Dates: start: 20051128, end: 20060705
  2. COLESTYRAMIN [Concomitant]
     Dates: start: 20060629, end: 20060713

REACTIONS (1)
  - DRUG EXPOSURE DURING PREGNANCY [None]
